FAERS Safety Report 16653441 (Version 2)
Quarter: 2019Q4

REPORT INFORMATION
  Report Type: Report from Study
  Country: IT (occurrence: IT)
  Receive Date: 20190731
  Receipt Date: 20191120
  Transmission Date: 20200122
  Serious: Yes (Hospitalization)
  Sender: FDA-Public Use
  Company Number: IT-TEVA-2019-IT-1085960

PATIENT
  Age: 34 Year
  Sex: Female

DRUGS (2)
  1. LEXOTAN 1,5 MG CAPSULE RIGIDE [Suspect]
     Active Substance: BROMAZEPAM
     Dosage: 1.5 MG
     Route: 048
  2. LEVOCETIRIZINE DIHYDROCHLORIDE. [Suspect]
     Active Substance: LEVOCETIRIZINE DIHYDROCHLORIDE
     Indication: AGITATION
     Dosage: 1.5 MG
     Route: 048
     Dates: start: 20190713, end: 20190715

REACTIONS (1)
  - Sopor [Recovering/Resolving]

NARRATIVE: CASE EVENT DATE: 20190715
